FAERS Safety Report 5531713-6 (Version None)
Quarter: 2007Q4

REPORT INFORMATION
  Report Type: 
  Country: None (occurrence: None)
  Receive Date: 20071203
  Receipt Date: 20071126
  Transmission Date: 20080405
  Serious: Yes (Hospitalization)
  Sender: FDA-Public Use
  Company Number: GB-BAYER-200716649GDS

PATIENT
  Age: 90 Year
  Sex: Female

DRUGS (2)
  1. ASPIRIN [Suspect]
     Indication: HYPERTENSION
     Route: 048
  2. AMLODIPINE [Concomitant]
     Indication: HYPERTENSION
     Route: 048

REACTIONS (10)
  - ABDOMINAL DISTENSION [None]
  - ANOREXIA [None]
  - COLONIC STENOSIS [None]
  - CONSTIPATION [None]
  - DEHYDRATION [None]
  - DIVERTICULUM OESOPHAGEAL [None]
  - GASTROINTESTINAL SOUNDS ABNORMAL [None]
  - LARGE INTESTINAL OBSTRUCTION [None]
  - NAUSEA [None]
  - VOMITING [None]
